FAERS Safety Report 7983993-5 (Version None)
Quarter: 2011Q4

REPORT INFORMATION
  Report Type: 
  Country: None (occurrence: None)
  Receive Date: 20111216
  Receipt Date: 20111206
  Transmission Date: 20120403
  Serious: Yes (Death)
  Sender: FDA-Public Use
  Company Number: FR-NOVOPROD-340762

PATIENT

DRUGS (3)
  1. LIRAGLUTIDE FLEXPEN [Suspect]
     Indication: DIABETES MELLITUS
     Dosage: 1.2 MG, QD
     Route: 058
     Dates: start: 20101208, end: 20110407
  2. REPAGLINIDE [Concomitant]
     Indication: DIABETES MELLITUS
     Dosage: 2 MG, QD
     Route: 048
  3. METFORMIN HCL [Concomitant]
     Indication: DIABETES MELLITUS
     Dosage: 3 G, QD
     Route: 048

REACTIONS (2)
  - PANCREATIC NEOPLASM [None]
  - HEPATIC NEOPLASM [None]
